FAERS Safety Report 15980402 (Version 16)
Quarter: 2021Q3

REPORT INFORMATION
  Report Type: Report from Study
  Country: DE (occurrence: DE)
  Receive Date: 20190219
  Receipt Date: 20210914
  Transmission Date: 20211014
  Serious: Yes (Death, Hospitalization, Other)
  Sender: FDA-Public Use
  Company Number: DE-ROCHE-2245095

PATIENT
  Age: 80 Year
  Sex: Male
  Weight: 80 kg

DRUGS (38)
  1. AMLODIPIN [Concomitant]
     Active Substance: AMLODIPINE BESYLATE
     Indication: HYPERTENSION
     Route: 048
     Dates: start: 20180207
  2. SALBUTAMOL [Concomitant]
     Active Substance: ALBUTEROL
     Dates: start: 20190406
  3. THIAMAZOL [Concomitant]
     Active Substance: METHIMAZOLE
     Indication: THYROID DISORDER
     Route: 048
     Dates: start: 20180308, end: 20180503
  4. COBIMETINIB. [Suspect]
     Active Substance: COBIMETINIB
     Indication: MALIGNANT MELANOMA
     Dosage: (THREE, 20 MG TABLETS)  ?DATE OF MOST RECENT DOSE OF COBIMETINIB: 10/JAN/2019, 12/MAR/2019?DATE OF M
     Route: 048
     Dates: start: 20171103
  5. VEMURAFENIB. [Suspect]
     Active Substance: VEMURAFENIB
     Indication: MALIGNANT MELANOMA
     Dosage: DATE OF MOST RECENT DOSE OF VEMURAFENIB (4 TABLETS): 10/JAN/2019?DATE OF MOST RECENT DOSE OF VEMURAF
     Route: 048
     Dates: start: 20171103
  6. OMEPRAZOL [Concomitant]
     Active Substance: OMEPRAZOLE
     Route: 048
     Dates: start: 20170101
  7. OMEPRAZOL [Concomitant]
     Active Substance: OMEPRAZOLE
     Route: 048
     Dates: start: 20181212
  8. LOPERAMID [Concomitant]
     Active Substance: LOPERAMIDE
     Indication: DIARRHOEA
     Route: 048
     Dates: start: 20171118
  9. FUCICORT [Concomitant]
     Active Substance: BETAMETHASONE VALERATE\FUSIDIC ACID
     Indication: ULCER
     Route: 061
     Dates: start: 20180111, end: 20180601
  10. MONO EMBOLEX [Concomitant]
     Active Substance: CERTOPARIN SODIUM
     Indication: THROMBOSIS PROPHYLAXIS
     Dosage: 3000 UNIT
     Route: 042
     Dates: start: 20190111, end: 20190120
  11. ENOXAPARIN [Concomitant]
     Active Substance: ENOXAPARIN
     Route: 048
     Dates: start: 20190409, end: 20190425
  12. PANTOPRAZOLE [Concomitant]
     Active Substance: PANTOPRAZOLE
     Route: 048
     Dates: start: 20190418
  13. ATEZOLIZUMAB. [Suspect]
     Active Substance: ATEZOLIZUMAB
     Indication: MALIGNANT MELANOMA
     Dosage: DATE OF MOST RECENT DOSE (260 ML) OF ATEZOLIZUMAB: 27/DEC/2018?DATE OF MOST RECENT DOSE OF ATEZOLIZU
     Route: 041
     Dates: start: 20171130
  14. BISODIPIN [Concomitant]
     Indication: TACHYCARDIA
     Route: 048
     Dates: start: 20171030
  15. ALLOPURINOL. [Concomitant]
     Active Substance: ALLOPURINOL
     Indication: HYPERURICAEMIA
     Route: 048
     Dates: start: 20171221, end: 20181101
  16. DEXERYL (GERMANY) [Concomitant]
     Indication: DRY SKIN
     Route: 061
     Dates: start: 20180604
  17. FLUCONAZOLE. [Concomitant]
     Active Substance: FLUCONAZOLE
     Indication: FUNGAL INFECTION
     Route: 048
     Dates: start: 20190417, end: 20190514
  18. CALCILAC [Concomitant]
     Active Substance: CALCIUM CARBONATE
     Indication: BLOOD CALCIUM INCREASED
     Route: 048
     Dates: start: 20190120, end: 20190501
  19. KALIUM VERLA [Concomitant]
     Active Substance: POTASSIUM CITRATE
     Indication: HYPOKALAEMIA
     Route: 048
     Dates: start: 20180419, end: 20180601
  20. COLECALCIFEROL [Concomitant]
     Active Substance: CHOLECALCIFEROL
     Indication: VITAMIN D DEFICIENCY
     Dosage: 1000 UNIT
     Route: 048
     Dates: start: 20190406
  21. IRENAT [Concomitant]
     Active Substance: SODIUM PERCHLORATE
     Indication: HYPERTHYROIDISM
     Dosage: 20 OTHER
     Route: 048
     Dates: start: 20190111, end: 20190501
  22. NOVALGIN (METAMIZOLE SODIUM) [Concomitant]
     Active Substance: METAMIZOLE SODIUM
     Indication: PAIN
     Route: 048
     Dates: start: 20171221
  23. TOREM [Concomitant]
     Active Substance: TORSEMIDE
     Indication: MYOCARDIAL INFARCTION
     Route: 048
     Dates: start: 20190406
  24. FUCICORT [Concomitant]
     Active Substance: BETAMETHASONE VALERATE\FUSIDIC ACID
     Indication: SUNBURN
     Route: 061
     Dates: start: 20180604, end: 20190501
  25. PREDNITOP [PREDNICARBATE] [Concomitant]
     Active Substance: PREDNICARBATE
     Indication: ECZEMA
     Route: 061
     Dates: start: 20180322, end: 20180601
  26. THIAMAZOL [Concomitant]
     Active Substance: METHIMAZOLE
     Route: 048
     Dates: start: 20180303, end: 20180307
  27. IRENAT [Concomitant]
     Active Substance: SODIUM PERCHLORATE
     Indication: THYROID DISORDER
     Route: 048
     Dates: start: 20180417, end: 20180503
  28. RAMIPRIL. [Concomitant]
     Active Substance: RAMIPRIL
     Indication: HYPERTENSION
     Route: 048
     Dates: start: 20180207
  29. METFORMIN [Concomitant]
     Active Substance: METFORMIN HYDROCHLORIDE
     Indication: DIABETES MELLITUS
     Route: 048
     Dates: start: 20171221, end: 20180501
  30. ENOXAPARIN [Concomitant]
     Active Substance: ENOXAPARIN
     Indication: THROMBOSIS PROPHYLAXIS
     Route: 048
     Dates: start: 20190406
  31. TICAGRELOR. [Concomitant]
     Active Substance: TICAGRELOR
     Indication: MYOCARDIAL INFARCTION
     Route: 048
     Dates: start: 20190418
  32. SIMVASTATIN. [Concomitant]
     Active Substance: SIMVASTATIN
     Indication: MYOCARDIAL INFARCTION
     Route: 048
     Dates: start: 20190418
  33. THIAMAZOL [Concomitant]
     Active Substance: METHIMAZOLE
     Route: 048
     Dates: start: 20190111, end: 20190120
  34. ACETYLSALICYLIC ACID [Concomitant]
     Active Substance: ASPIRIN
     Indication: MYOCARDIAL INFARCTION
     Route: 048
     Dates: start: 20190418
  35. KALIUM VERLA [Concomitant]
     Active Substance: POTASSIUM CITRATE
     Route: 048
     Dates: start: 20190418
  36. FOLATE [Concomitant]
     Active Substance: FOLATE SODIUM
     Indication: ANAEMIA
     Route: 048
     Dates: start: 20190409
  37. OCTENISAN LOTION [Concomitant]
     Indication: SUNBURN
     Route: 061
     Dates: start: 20180604, end: 20190501
  38. TORASEMID [Concomitant]
     Active Substance: TORSEMIDE
     Indication: HYPERTENSION
     Route: 048
     Dates: start: 20190418

REACTIONS (4)
  - Cholangitis [Not Recovered/Not Resolved]
  - Hyperthyroidism [Recovered/Resolved]
  - Ejection fraction decreased [Not Recovered/Not Resolved]
  - Myocardial infarction [Recovered/Resolved]

NARRATIVE: CASE EVENT DATE: 20190110
